FAERS Safety Report 19170355 (Version 3)
Quarter: 2022Q2

REPORT INFORMATION
  Report Type: Spontaneous
  Country: US (occurrence: US)
  Receive Date: 20210422
  Receipt Date: 20220425
  Transmission Date: 20220721
  Serious: Yes (Other)
  Sender: FDA-Public Use
  Company Number: US-PFIZER INC-2021349259

PATIENT
  Age: 46 Year
  Sex: Male

DRUGS (2)
  1. LYRICA [Suspect]
     Active Substance: PREGABALIN
     Indication: Pain
     Dosage: UNK
  2. LYRICA [Suspect]
     Active Substance: PREGABALIN
     Indication: Diabetic neuropathy

REACTIONS (9)
  - Nephrolithiasis [Unknown]
  - Therapeutic response shortened [Unknown]
  - Product prescribing error [Unknown]
  - Feeling abnormal [Unknown]
  - Metabolic disorder [Unknown]
  - Movement disorder [Unknown]
  - Pain [Unknown]
  - Neuralgia [Unknown]
  - Fatigue [Unknown]
